FAERS Safety Report 8216060-6 (Version None)
Quarter: 2012Q1

REPORT INFORMATION
  Report Type: 
  Country: None (occurrence: None)
  Receive Date: 20120316
  Receipt Date: 20120307
  Transmission Date: 20120608
  Serious: Yes (Other)
  Sender: FDA-Public Use
  Company Number: US-EISAI INC-E3810-05375-SPO-US

PATIENT
  Sex: Female
  Weight: 88 kg

DRUGS (3)
  1. REMICADE [Suspect]
     Dosage: UNKNOWN
  2. ACIPHEX [Suspect]
     Indication: GASTRIC DISORDER
     Route: 048
  3. FORTEO [Concomitant]
     Indication: OSTEOPOROSIS

REACTIONS (4)
  - MACULAR OEDEMA [None]
  - PAIN IN EXTREMITY [None]
  - WEIGHT INCREASED [None]
  - BACK PAIN [None]
